FAERS Safety Report 8963707 (Version 1)
Quarter: 2012Q4

REPORT INFORMATION
  Report Type: 
  Country: US (occurrence: US)
  Receive Date: 20121214
  Receipt Date: 20121214
  Transmission Date: 20130627
  Serious: No
  Sender: FDA-Public Use
  Company Number: US-009507513-1212USA005447

PATIENT
  Age: 28 Year
  Sex: Female

DRUGS (1)
  1. NUVARING [Suspect]
     Indication: CONTRACEPTION
     Dosage: 0.015mg etonogestrel/0.12 mg ethinyl estradiol
     Route: 067
     Dates: start: 2008

REACTIONS (3)
  - Pain [Recovered/Resolved]
  - Device breakage [Unknown]
  - Product quality issue [Unknown]
